FAERS Safety Report 7810366-8 (Version None)
Quarter: 2011Q4

REPORT INFORMATION
  Report Type: 
  Country: None (occurrence: None)
  Receive Date: 20111012
  Receipt Date: 20111003
  Transmission Date: 20120403
  Serious: Yes (Other)
  Sender: FDA-Public Use
  Company Number: US-ASTRAZENECA-2010SE52988

PATIENT
  Age: 65 Year
  Sex: Female
  Weight: 88.5 kg

DRUGS (7)
  1. CRESTOR [Suspect]
     Indication: BLOOD CHOLESTEROL INCREASED
     Route: 048
     Dates: start: 20101004, end: 20101102
  2. XANAX [Concomitant]
  3. SYNTHROID [Concomitant]
  4. NORVASC [Suspect]
     Route: 065
  5. NEXIUM [Suspect]
     Dosage: 40 MG BID
     Route: 048
  6. NORVASC [Suspect]
     Route: 065
  7. PLAVIX [Suspect]
     Route: 065

REACTIONS (3)
  - TINNITUS [None]
  - DYSPHEMIA [None]
  - CEREBROVASCULAR ACCIDENT [None]
